FAERS Safety Report 12412073 (Version 1)
Quarter: 2016Q2

REPORT INFORMATION
  Report Type: Spontaneous
  Country: FR (occurrence: FR)
  Receive Date: 20160527
  Receipt Date: 20160527
  Transmission Date: 20160815
  Serious: Yes (Congenital Anomaly)
  Sender: FDA-Public Use
  Company Number: FR-ABBVIE-16P-163-1637486-00

PATIENT
  Sex: Female

DRUGS (1)
  1. DEPAKINE [Suspect]
     Active Substance: VALPROATE SODIUM
     Indication: MATERNAL EXPOSURE TIMING UNSPECIFIED
     Route: 064

REACTIONS (8)
  - Peripheral venous disease [Unknown]
  - Foetal exposure during pregnancy [Unknown]
  - Muscle spasms [Unknown]
  - Oedema peripheral [Unknown]
  - Mastocytosis [Unknown]
  - Kidney malformation [Unknown]
  - Telangiectasia [Unknown]
  - Limb discomfort [Unknown]

NARRATIVE: CASE EVENT DATE: 19880119
